FAERS Safety Report 6171812-1 (Version None)
Quarter: 2009Q2

REPORT INFORMATION
  Report Type: 
  Country: None (occurrence: None)
  Receive Date: 20090429
  Receipt Date: 20090423
  Transmission Date: 20091009
  Serious: Yes (Hospitalization)
  Sender: FDA-Public Use
  Company Number: DE-ROCHE-629187

PATIENT
  Sex: Female
  Weight: 73 kg

DRUGS (2)
  1. MYCOPHENOLATE MOFETIL [Suspect]
     Indication: IMMUNOSUPPRESSION
     Route: 048
  2. TACROLIMUS [Concomitant]
     Indication: IMMUNOSUPPRESSION
     Route: 048

REACTIONS (2)
  - MENORRHAGIA [None]
  - MICROCYTIC ANAEMIA [None]
